FAERS Safety Report 12731358 (Version 1)
Quarter: 2016Q3

REPORT INFORMATION
  Report Type: Spontaneous
  Country: US (occurrence: US)
  Receive Date: 20160909
  Receipt Date: 20160909
  Transmission Date: 20161109
  Serious: Yes (Death)
  Sender: FDA-Public Use
  Company Number: None

PATIENT
  Age: 5 Year
  Sex: Male
  Weight: 21 kg

DRUGS (1)
  1. DOCUSATE LIQUID [Suspect]
     Active Substance: DOCUSATE
     Indication: CONSTIPATION
     Route: 048
     Dates: start: 20160314, end: 20160507

REACTIONS (6)
  - Cerebral haemorrhage [None]
  - Renal failure [None]
  - Weaning failure [None]
  - Fall [None]
  - Burkholderia test positive [None]
  - Septic shock [None]

NARRATIVE: CASE EVENT DATE: 20160314
